FAERS Safety Report 8848787 (Version 1)
Quarter: 2012Q4

REPORT INFORMATION
  Report Type: Spontaneous
  Country: US (occurrence: None)
  Receive Date: 20121017
  Receipt Date: 20121017
  Transmission Date: 20130627
  Serious: Yes (Hospitalization, Other)
  Sender: FDA-Public Use
  Company Number: None

PATIENT
  Age: 60 Year
  Sex: Male

DRUGS (2)
  1. PEGASYS [Suspect]
     Indication: HEPATITIS C
     Dosage: 180mcg, weekly, sq
     Route: 058
     Dates: start: 20120820, end: 20120826
  2. RIBAVIRIN [Suspect]
     Dosage: 200mg, 3am 3pm, po
     Route: 048
     Dates: start: 20120820, end: 20120826

REACTIONS (3)
  - Anaemia [None]
  - Renal failure acute [None]
  - Nausea [None]
